FAERS Safety Report 9233212 (Version 1)
Quarter: 2013Q2

REPORT INFORMATION
  Report Type: Spontaneous
  Country: US (occurrence: US)
  Receive Date: 20130416
  Receipt Date: 20130416
  Transmission Date: 20140414
  Serious: Yes (Other)
  Sender: FDA-Public Use
  Company Number: US-BANPHARM-20130888

PATIENT
  Age: 28 Year
  Sex: Male
  Weight: 104.33 kg

DRUGS (1)
  1. ALEVE LIQUID GELS 220MG [Suspect]
     Dosage: 2 DF, TID,
     Route: 048
     Dates: start: 20120330, end: 20120401

REACTIONS (6)
  - Tongue blistering [Not Recovered/Not Resolved]
  - Blister [Not Recovered/Not Resolved]
  - Pain in extremity [Not Recovered/Not Resolved]
  - Erythema [Not Recovered/Not Resolved]
  - Burning sensation [Not Recovered/Not Resolved]
  - Hypersensitivity [Not Recovered/Not Resolved]
